FAERS Safety Report 13005261 (Version 1)
Quarter: 2016Q4

REPORT INFORMATION
  Report Type: Spontaneous
  Country: BR (occurrence: BR)
  Receive Date: 20161207
  Receipt Date: 20161207
  Transmission Date: 20170207
  Serious: Yes (Other)
  Sender: FDA-Public Use
  Company Number: PHHY2016BR160118

PATIENT
  Sex: Female
  Weight: 74 kg

DRUGS (4)
  1. EXELON [Suspect]
     Active Substance: RIVASTIGMINE TARTRATE
     Indication: DEMENTIA ALZHEIMER^S TYPE
     Dosage: 1 DF, BID (1 IN MORNING AND 1 AT NIGHT)
     Route: 048
  2. LEPONEX [Concomitant]
     Active Substance: CLOZAPINE
     Indication: SCHIZOPHRENIA
     Dosage: 2 DF, QD
     Route: 048
  3. GALANTAMINE. [Suspect]
     Active Substance: GALANTAMINE
     Indication: PRODUCT USED FOR UNKNOWN INDICATION
     Dosage: 1 DF, BID (1 IN MORNING AND 1 AT NIGHT)
     Route: 048
  4. DEPAKOTE [Concomitant]
     Active Substance: DIVALPROEX SODIUM
     Indication: SEIZURE
     Dosage: 2.5 DF, QD
     Route: 048

REACTIONS (5)
  - Hypothyroidism [Recovering/Resolving]
  - Seizure [Unknown]
  - Diarrhoea [Recovering/Resolving]
  - Diabetes mellitus [Recovering/Resolving]
  - Blood cholesterol [Recovering/Resolving]
